FAERS Safety Report 7041094-7 (Version None)
Quarter: 2010Q3

REPORT INFORMATION
  Report Type: 
  Country: None (occurrence: None)
  Receive Date: 20100929
  Receipt Date: 20100610
  Transmission Date: 20110219
  Serious: No
  Sender: FDA-Public Use
  Company Number: US-WYE-H15644510

PATIENT
  Age: 51 Year
  Sex: Female
  Weight: 47.67 kg

DRUGS (7)
  1. PRISTIQ [Suspect]
     Indication: DEPRESSION
     Dosage: 50 MG 1X PER 1 DAY
     Dates: start: 20100517
  2. FENTANYL-100 [Concomitant]
  3. VICODIN ES [Concomitant]
  4. ALPRAZOLAM [Concomitant]
  5. SOMA [Concomitant]
  6. ASPIRIN [Concomitant]
  7. AMBIEN [Concomitant]

REACTIONS (6)
  - DIZZINESS [None]
  - FIBROCYSTIC BREAST DISEASE [None]
  - HOT FLUSH [None]
  - HYPERHIDROSIS [None]
  - NONSPECIFIC REACTION [None]
  - VERTIGO [None]
